FAERS Safety Report 8007988-0 (Version None)
Quarter: 2011Q4

REPORT INFORMATION
  Report Type: 
  Country: None (occurrence: None)
  Receive Date: 20111221
  Receipt Date: 20111212
  Transmission Date: 20120403
  Serious: Yes (Disabling, Other)
  Sender: FDA-Public Use
  Company Number: AUR-APL-2011-03958

PATIENT
  Age: 62 Year
  Sex: Female

DRUGS (7)
  1. GABAPENTIN [Suspect]
     Indication: NERVE INJURY
     Dosage: 600 MG (300 MG, 2 IN 1 D),ORAL, 12 YEARS AGO
     Route: 048
  2. INDOCET (INDOMETACIN) [Concomitant]
  3. FOSAMAX [Concomitant]
  4. CYMBALTA (DULOXTTNE HYDROCHLORIDE) [Concomitant]
  5. TRAZADONE (TRAZODONE HYDROCHLORIDE) [Concomitant]
  6. TIZANIDINE HCL [Concomitant]
  7. FENTANYL [Concomitant]

REACTIONS (9)
  - BACK PAIN [None]
  - WEIGHT DECREASED [None]
  - MALAISE [None]
  - BACK INJURY [None]
  - TOOTH LOSS [None]
  - GINGIVAL DISCOLOURATION [None]
  - QUALITY OF LIFE DECREASED [None]
  - HEADACHE [None]
  - DENTAL CARIES [None]
